FAERS Safety Report 5572240-X (Version None)
Quarter: 2007Q4

REPORT INFORMATION
  Report Type: 
  Country: None (occurrence: None)
  Receive Date: 20071221
  Receipt Date: 20071213
  Transmission Date: 20080405
  Serious: Yes (Hospitalization)
  Sender: FDA-Public Use
  Company Number: US-GILEAD-2007-0014548

PATIENT
  Sex: Female

DRUGS (12)
  1. LETAIRIS [Suspect]
     Indication: PULMONARY HYPERTENSION
     Dates: start: 20071119, end: 20071126
  2. LISINOPRIL [Concomitant]
     Route: 048
  3. CARDURA [Concomitant]
     Route: 048
  4. LABETALOL HCL [Concomitant]
     Route: 048
     Dates: start: 20060301
  5. PROTONIX [Concomitant]
     Route: 048
     Dates: start: 20051212
  6. LASIX [Concomitant]
     Indication: CARDIAC FAILURE CONGESTIVE
     Route: 048
     Dates: start: 20060301
  7. LASIX [Concomitant]
     Indication: COR PULMONALE
  8. AVAPRO [Concomitant]
     Indication: CARDIAC FAILURE CONGESTIVE
     Route: 048
  9. KLOR-CON [Concomitant]
     Indication: HYPOKALAEMIA
     Route: 048
  10. COUMADIN [Concomitant]
     Indication: ATRIAL FIBRILLATION
     Route: 048
  11. PULMICORT [Concomitant]
     Indication: CHRONIC OBSTRUCTIVE PULMONARY DISEASE
     Route: 055
     Dates: start: 20041216
  12. ATROVENT [Concomitant]
     Indication: CHRONIC OBSTRUCTIVE PULMONARY DISEASE
     Route: 055
     Dates: start: 20041216

REACTIONS (3)
  - CARDIAC FAILURE [None]
  - DYSPNOEA [None]
  - OEDEMA PERIPHERAL [None]
